FAERS Safety Report 13926217 (Version 1)
Quarter: 2017Q3

REPORT INFORMATION
  Report Type: Spontaneous
  Country: ZA (occurrence: ZA)
  Receive Date: 20170831
  Receipt Date: 20170831
  Transmission Date: 20171127
  Serious: Yes (Other)
  Sender: FDA-Public Use
  Company Number: ZA-PFIZER INC-2017374288

PATIENT
  Age: 49 Year
  Sex: Female
  Weight: 97 kg

DRUGS (6)
  1. CHLOROQUINE. [Concomitant]
     Active Substance: CHLOROQUINE
     Dosage: 200 UG, DAILY
     Dates: start: 2012
  2. ENBREL [Suspect]
     Active Substance: ETANERCEPT
     Indication: RHEUMATOID ARTHRITIS
     Dosage: 50 MG, WEEKLY
     Route: 058
     Dates: start: 20160205
  3. SALAZOPYRINE [Concomitant]
     Active Substance: SULFASALAZINE
     Dosage: 1 G, 2X/DAY
     Dates: start: 2015, end: 2017
  4. METHOTREXATE. [Suspect]
     Active Substance: METHOTREXATE
     Dosage: 15 MG, WEEKLY
     Dates: start: 2012
  5. ARAVA [Suspect]
     Active Substance: LEFLUNOMIDE
     Dosage: 20 UG, DAILY
     Dates: start: 201504, end: 20160313
  6. ARAVA [Suspect]
     Active Substance: LEFLUNOMIDE
     Dosage: 20 UG, DAILY

REACTIONS (2)
  - Depression [Unknown]
  - Spinal osteoarthritis [Unknown]
